FAERS Safety Report 9311388 (Version 1)
Quarter: 2013Q2

REPORT INFORMATION
  Report Type: Spontaneous
  Country: NL (occurrence: NL)
  Receive Date: 20130528
  Receipt Date: 20130528
  Transmission Date: 20140414
  Serious: Yes (Life-Threatening)
  Sender: FDA-Public Use
  Company Number: NL-AMGEN-NLDSP2013037143

PATIENT
  Age: 93 Year
  Sex: Male

DRUGS (1)
  1. XGEVA [Suspect]
     Indication: BONE DISORDER
     Dosage: UNK
     Dates: start: 20120613

REACTIONS (1)
  - Terminal state [Unknown]
